FAERS Safety Report 8153612-6 (Version None)
Quarter: 2012Q1

REPORT INFORMATION
  Report Type: 
  Country: None (occurrence: None)
  Receive Date: 20120206
  Receipt Date: 20120206
  Transmission Date: 20120608
  Serious: Yes (Other)
  Sender: FDA-Public Use
  Company Number: None

PATIENT
  Sex: Female
  Weight: 113.3993 kg

DRUGS (2)
  1. LUNESTA [Suspect]
     Indication: DELAYED SLEEP PHASE
     Dosage: 2MG PM ORAL 3 MG PM ORAL
     Route: 048
     Dates: start: 20110809, end: 20110817
  2. LUNESTA [Suspect]
     Indication: DELAYED SLEEP PHASE
     Dosage: 2MG PM ORAL 3 MG PM ORAL
     Route: 048
     Dates: start: 20110818, end: 20110823

REACTIONS (11)
  - DEPRESSION [None]
  - AGGRESSION [None]
  - BREAST PAIN [None]
  - SUICIDAL IDEATION [None]
  - BREAST ENLARGEMENT [None]
  - PARAESTHESIA [None]
  - DIZZINESS [None]
  - HEADACHE [None]
  - PYREXIA [None]
  - DYSGEUSIA [None]
  - IRRITABILITY [None]
